FAERS Safety Report 18827057 (Version 1)
Quarter: 2021Q1

REPORT INFORMATION
  Report Type: Spontaneous
  Country: US (occurrence: US)
  Receive Date: 20210201
  Receipt Date: 20210201
  Transmission Date: 20210419
  Serious: No
  Sender: FDA-Public Use
  Company Number: US-ABBVIE-20K-163-3448134-00

PATIENT

DRUGS (1)
  1. HUMIRA [Suspect]
     Active Substance: ADALIMUMAB
     Indication: PSORIATIC ARTHROPATHY
     Route: 058

REACTIONS (11)
  - Scratch [Unknown]
  - Thermal burn [Unknown]
  - Formication [Unknown]
  - Rash [Not Recovered/Not Resolved]
  - Skin plaque [Unknown]
  - Lacrimation increased [Recovered/Resolved]
  - Arthralgia [Unknown]
  - Burning sensation [Unknown]
  - Rash pruritic [Unknown]
  - Pruritus [Unknown]
  - Scab [Unknown]
